FAERS Safety Report 22049789 (Version 1)
Quarter: 2023Q1

REPORT INFORMATION
  Report Type: Spontaneous
  Country: US (occurrence: None)
  Receive Date: 20230228
  Receipt Date: 20230228
  Transmission Date: 20230417
  Serious: Yes (Hospitalization)
  Sender: FDA-Public Use
  Company Number: None

PATIENT
  Age: 76 Year
  Sex: Female
  Weight: 48.99 kg

DRUGS (21)
  1. LENALIDOMIDE [Suspect]
     Active Substance: LENALIDOMIDE
     Indication: Plasma cell myeloma
     Dosage: OTHER FREQUENCY : 21D ON 7D OFF;?
     Route: 048
  2. ACYCLOVIR [Concomitant]
     Active Substance: ACYCLOVIR
  3. AMBIEN [Concomitant]
     Active Substance: ZOLPIDEM TARTRATE
  4. ASPIRIN [Concomitant]
     Active Substance: ASPIRIN
  5. BENEFIBER [Concomitant]
     Active Substance: STARCH, WHEAT
  6. CITALOPRAM [Concomitant]
     Active Substance: CITALOPRAM HYDROBROMIDE
  7. COLESTIPOL [Concomitant]
     Active Substance: COLESTIPOL
  8. DEXAMETHASONE [Concomitant]
     Active Substance: DEXAMETHASONE
  9. DOXYCYCLINE [Concomitant]
     Active Substance: DOXYCYCLINE
  10. EVUSHELD [Concomitant]
     Active Substance: CILGAVIMAB\TIXAGEVIMAB
  11. IMODIUM AD [Concomitant]
     Active Substance: LOPERAMIDE HYDROCHLORIDE
  12. IRON [Concomitant]
     Active Substance: IRON
  13. LACTASE [Concomitant]
     Active Substance: LACTASE
  14. LOMOTIL [Concomitant]
     Active Substance: ATROPINE SULFATE\DIPHENOXYLATE HYDROCHLORIDE
  15. LORAZEPAM [Concomitant]
     Active Substance: LORAZEPAM
  16. METOPROLOL [Concomitant]
     Active Substance: METOPROLOL
  17. OMEPRAZOLE [Concomitant]
     Active Substance: OMEPRAZOLE
  18. ONDANSETRON [Concomitant]
     Active Substance: ONDANSETRON
  19. REVLIMID [Concomitant]
     Active Substance: LENALIDOMIDE
  20. URSODIOL [Concomitant]
     Active Substance: URSODIOL
  21. VELCADE [Concomitant]
     Active Substance: BORTEZOMIB

REACTIONS (4)
  - Fatigue [None]
  - Dyspnoea [None]
  - Pain in extremity [None]
  - Fibrin D dimer increased [None]
